FAERS Safety Report 5487377-3 (Version None)
Quarter: 2007Q4

REPORT INFORMATION
  Report Type: 
  Country: None (occurrence: None)
  Receive Date: 20071016
  Receipt Date: 20071001
  Transmission Date: 20080405
  Serious: No
  Sender: FDA-Public Use
  Company Number: US-BOEHRINGER INGELHEIM PHARMACEUTICALS, INC.-2007-BP-21957BP

PATIENT
  Sex: Female

DRUGS (1)
  1. DULCOLAX SUPPOSITORY [Suspect]
     Indication: CONSTIPATION
     Route: 054
     Dates: start: 20070930, end: 20070930

REACTIONS (1)
  - ABDOMINAL PAIN [None]
